FAERS Safety Report 7100189-X (Version None)
Quarter: 2010Q4

REPORT INFORMATION
  Report Type: 
  Country: None (occurrence: None)
  Receive Date: 20101112
  Receipt Date: 20101109
  Transmission Date: 20110411
  Serious: Yes (Hospitalization)
  Sender: FDA-Public Use
  Company Number: JP-PFIZER INC-2010113127

PATIENT
  Age: 68 Year
  Sex: Female

DRUGS (11)
  1. RIFABUTIN [Suspect]
     Indication: MYCOBACTERIUM AVIUM COMPLEX INFECTION
     Dosage: 150MG/DAY
     Route: 048
     Dates: start: 20081202, end: 20081212
  2. AMLODIPINE [Suspect]
     Dosage: 5 MG, 1X/DAY
     Route: 048
  3. KLARICID [Suspect]
     Indication: INFECTION
     Dosage: 200 MG, 3X/DAY
     Route: 048
  4. PLETAL [Suspect]
     Dosage: 50 MG, 4X/DAY
     Route: 048
  5. ARTIST [Suspect]
     Dosage: 20 MG, 1X/DAY
     Route: 048
  6. WARFARIN [Suspect]
     Dosage: 4.5 MG, 1X/DAY
     Route: 048
  7. ALESION [Suspect]
     Dosage: 20 MG, 1X/DAY
     Route: 048
  8. ESANBUTOL [Suspect]
     Indication: INFECTION
     Dosage: 250 MG, 3X/DAY
     Route: 048
  9. CYANOCOBALAMIN [Suspect]
     Dosage: 500 UG, 3X/DAY
     Route: 048
  10. LANIRAPID [Suspect]
     Dosage: 0.1 MG, 1X/DAY
     Route: 048
  11. LEVOFLOXACIN [Concomitant]
     Indication: INFECTION
     Dosage: 300 MG/DAY
     Route: 048

REACTIONS (2)
  - INTERNATIONAL NORMALISED RATIO INCREASED [None]
  - WHITE BLOOD CELL COUNT DECREASED [None]
